FAERS Safety Report 4796684-9 (Version None)
Quarter: 2005Q4

REPORT INFORMATION
  Report Type: 
  Country: None (occurrence: None)
  Receive Date: 20051007
  Receipt Date: 20050922
  Transmission Date: 20060501
  Serious: Yes (Other)
  Sender: FDA-Public Use
  Company Number: 2005137086

PATIENT
  Age: 74 Year
  Sex: Male

DRUGS (3)
  1. IRINOTECAN HCL [Suspect]
     Indication: GASTRIC CANCER
     Dosage: INTRAVENOUS
     Route: 042
  2. TEGAFUR (TEGAFUR) [Concomitant]
  3. ACTA MEDICA KINKI UNIVERSITY [Concomitant]

REACTIONS (1)
  - GASTROINTESTINAL PERFORATION [None]
